FAERS Safety Report 10597806 (Version 2)
Quarter: 2014Q4

REPORT INFORMATION
  Report Type: Spontaneous
  Country: CA (occurrence: CA)
  Receive Date: 20141121
  Receipt Date: 20141121
  Transmission Date: 20150529
  Serious: Yes (Death, Hospitalization, Other)
  Sender: FDA-Public Use
  Company Number: CA-CELGENE-028-20785-13072329

PATIENT

DRUGS (7)
  1. DEXAMETHASONE. [Suspect]
     Active Substance: DEXAMETHASONE
     Indication: PLASMA CELL MYELOMA
     Dosage: 40 MILLIGRAM
     Route: 048
  2. CISPLATIN. [Suspect]
     Active Substance: CISPLATIN
     Indication: PLASMA CELL MYELOMA
     Route: 065
  3. THALOMID [Suspect]
     Active Substance: THALIDOMIDE
     Dosage: 100-400MG
     Route: 048
  4. DOXORUBICIN [Suspect]
     Active Substance: DOXORUBICIN
     Indication: PLASMA CELL MYELOMA
     Route: 065
  5. THALOMID [Suspect]
     Active Substance: THALIDOMIDE
     Indication: PLASMA CELL MYELOMA
     Dosage: 50-200MG
     Route: 048
  6. CYCLOPHOSPHAMIDE. [Suspect]
     Active Substance: CYCLOPHOSPHAMIDE
     Indication: PLASMA CELL MYELOMA
     Route: 065
  7. ETOPOSIDE. [Suspect]
     Active Substance: ETOPOSIDE
     Indication: PLASMA CELL MYELOMA
     Route: 065

REACTIONS (49)
  - Pulmonary embolism [Fatal]
  - Renal failure [Unknown]
  - Skin infection [Unknown]
  - Thrombosis in device [Unknown]
  - Sepsis [Unknown]
  - Fatigue [Unknown]
  - Hyperkalaemia [Unknown]
  - Catheter site haemorrhage [Unknown]
  - Neutropenic infection [Unknown]
  - Epistaxis [Unknown]
  - Second primary malignancy [Unknown]
  - Haematuria [Unknown]
  - Peripheral sensory neuropathy [Unknown]
  - Failure to thrive [Unknown]
  - Cough [Unknown]
  - Neutropenic sepsis [Fatal]
  - Pneumonia [Fatal]
  - Mucosal inflammation [Unknown]
  - Hypomagnesaemia [Unknown]
  - Hyperglycaemia [Unknown]
  - Vomiting [Unknown]
  - Herpes simplex [Unknown]
  - Constipation [Unknown]
  - Hypophosphataemia [Unknown]
  - Hyponatraemia [Unknown]
  - Rectal haemorrhage [Unknown]
  - Hepatosplenic candidiasis [Unknown]
  - Pyrexia [Unknown]
  - Neutropenia [Unknown]
  - Nausea [Unknown]
  - Thrombocytopenia [Unknown]
  - Pneumonitis [Unknown]
  - Cardiac failure congestive [Unknown]
  - Febrile neutropenia [Unknown]
  - Rash [Unknown]
  - Supraventricular tachycardia [Unknown]
  - Upper gastrointestinal haemorrhage [Fatal]
  - Hyperbilirubinaemia [Unknown]
  - Hypokalaemia [Unknown]
  - Diarrhoea [Unknown]
  - Hepatic enzyme increased [Unknown]
  - Anaemia [Unknown]
  - Respiratory tract infection [Unknown]
  - Conjunctival haemorrhage [Unknown]
  - Mouth haemorrhage [Unknown]
  - Hypocalcaemia [Unknown]
  - Bacterial sepsis [Unknown]
  - Pain [Unknown]
  - Plasma cell myeloma [Unknown]
